FAERS Safety Report 4969359-0 (Version None)
Quarter: 2006Q2

REPORT INFORMATION
  Report Type: 
  Country: None (occurrence: None)
  Receive Date: 20060405
  Receipt Date: 20060324
  Transmission Date: 20061013
  Serious: Yes (Death)
  Sender: FDA-Public Use
  Company Number: 2005BI019746

PATIENT
  Age: 64 Year
  Sex: Male

DRUGS (8)
  1. AVONEX [Suspect]
     Indication: MULTIPLE SCLEROSIS
     Dosage: 30 UG;QW;IM
     Route: 030
     Dates: end: 20050801
  2. ZOFRAN [Concomitant]
  3. TERAZOSIN HCL [Concomitant]
  4. SENNA [Concomitant]
  5. RANITIDINE [Concomitant]
  6. REGLAN [Concomitant]
  7. IRON [Concomitant]
  8. COLACE [Concomitant]

REACTIONS (2)
  - METASTATIC GASTRIC CANCER [None]
  - NEOPLASM MALIGNANT [None]
